FAERS Safety Report 6822867-X (Version None)
Quarter: 2010Q3

REPORT INFORMATION
  Report Type: 
  Country: None (occurrence: None)
  Receive Date: 20100702
  Receipt Date: 20100621
  Transmission Date: 20110219
  Serious: Yes (Life-Threatening, Hospitalization)
  Sender: FDA-Public Use
  Company Number: 2010GW000476

PATIENT
  Age: 51 Year
  Sex: Female
  Weight: 120 kg

DRUGS (4)
  1. ALDARA [Suspect]
     Indication: ACTINIC KERATOSIS
     Dosage: 5 PCT; 5XW;TOP
     Route: 061
     Dates: start: 20091101, end: 20091101
  2. ALDARA [Suspect]
     Indication: BASAL CELL CARCINOMA
     Dosage: 5 PCT; 5XW;TOP
     Route: 061
     Dates: start: 20091101, end: 20091101
  3. ALDARA [Suspect]
     Indication: ACTINIC KERATOSIS
     Dosage: 5 PCT; 5XW;TOP
     Route: 061
     Dates: start: 20100101, end: 20100101
  4. ALDARA [Suspect]
     Indication: BASAL CELL CARCINOMA
     Dosage: 5 PCT; 5XW;TOP
     Route: 061
     Dates: start: 20100101, end: 20100101

REACTIONS (1)
  - DUODENAL PERFORATION [None]
